FAERS Safety Report 5247984-X (Version None)
Quarter: 2007Q1

REPORT INFORMATION
  Report Type: 
  Country: None (occurrence: None)
  Receive Date: 20070222
  Receipt Date: 20070212
  Transmission Date: 20070707
  Serious: Yes (Life-Threatening)
  Sender: FDA-Public Use
  Company Number: 2007-152854-NL

PATIENT
  Age: 28 Year
  Sex: Female

DRUGS (4)
  1. FOLLITROPIN BETA [Suspect]
     Indication: ASSISTED FERTILISATION
     Dosage: 150 IU
     Dates: start: 20061009, end: 20061018
  2. TRIPTORELIN ACETATE [Suspect]
     Indication: ASSISTED FERTILISATION
     Dosage: 1 DF/0.5 DF, SUBCUTANEOUS
     Route: 058
     Dates: start: 20060923, end: 20061006
  3. TRIPTORELIN ACETATE [Suspect]
     Indication: ASSISTED FERTILISATION
     Dosage: 1 DF/0.5 DF, SUBCUTANEOUS
     Route: 058
     Dates: start: 20061007, end: 20061018
  4. CHORIONIC GONADTROPIN [Suspect]
     Indication: ASSISTED FERTILISATION
     Dosage: DF, SUBCUTANEOUS
     Route: 058
     Dates: start: 20061019, end: 20061019

REACTIONS (12)
  - ASCITES [None]
  - CACHEXIA [None]
  - ESCHERICHIA INFECTION [None]
  - IMMUNE SYSTEM DISORDER [None]
  - NEPHROTIC SYNDROME [None]
  - OVARIAN HYPERSTIMULATION SYNDROME [None]
  - PELVIC FLUID COLLECTION [None]
  - PELVIC HAEMATOMA [None]
  - PERITONITIS [None]
  - PLEURAL EFFUSION [None]
  - RESPIRATORY DISTRESS [None]
  - SCAR [None]
